FAERS Safety Report 6139297-9 (Version None)
Quarter: 2009Q2

REPORT INFORMATION
  Report Type: 
  Country: None (occurrence: None)
  Receive Date: 20090401
  Receipt Date: 20090324
  Transmission Date: 20091009
  Serious: Yes (Hospitalization)
  Sender: FDA-Public Use
  Company Number: AU-WYE-H08655009

PATIENT
  Age: 42 Year
  Sex: Female

DRUGS (1)
  1. SOMAC [Suspect]
     Indication: OESOPHAGEAL DISORDER
     Dosage: UNKNOWN, ONCE DAILY
     Route: 048
     Dates: end: 20071211

REACTIONS (7)
  - ABDOMINAL PAIN [None]
  - DRUG HYPERSENSITIVITY [None]
  - DYSPNOEA [None]
  - LIP SWELLING [None]
  - PRURITUS GENERALISED [None]
  - SWELLING FACE [None]
  - WHEEZING [None]
